FAERS Safety Report 4358160-7 (Version None)
Quarter: 2004Q2

REPORT INFORMATION
  Report Type: 
  Country: None (occurrence: None)
  Receive Date: 20040510
  Receipt Date: 20040503
  Transmission Date: 20050107
  Serious: Yes (Hospitalization)
  Sender: FDA-Public Use
  Company Number: US-JNJFOC-20040500685

PATIENT
  Sex: Female

DRUGS (2)
  1. RISPERDAL [Suspect]
     Indication: AGITATION
     Dosage: 2 MG, 2 IN 1 DAY, ORAL
     Route: 048
  2. COGENTIN [Concomitant]

REACTIONS (1)
  - EXTRAPYRAMIDAL DISORDER [None]
